FAERS Safety Report 25120040 (Version 1)
Quarter: 2025Q1

REPORT INFORMATION
  Report Type: Spontaneous
  Country: BE (occurrence: BE)
  Receive Date: 20250325
  Receipt Date: 20250325
  Transmission Date: 20250408
  Serious: Yes (Other)
  Sender: SUNOVION
  Company Number: None

PATIENT

DRUGS (7)
  1. RELUGOLIX [Suspect]
     Active Substance: RELUGOLIX
     Indication: Hormone-dependent prostate cancer
     Dosage: STRENGTH: 120 MG
     Dates: start: 20250206, end: 20250208
  2. KEPPRA [Concomitant]
     Active Substance: LEVETIRACETAM
  3. PANTOPRAZOLE [Concomitant]
     Active Substance: PANTOPRAZOLE
  4. LEVOTHYROXINE [Concomitant]
     Active Substance: LEVOTHYROXINE
     Route: 048
  5. CLOPIDOGREL [Concomitant]
     Active Substance: CLOPIDOGREL BISULFATE
  6. EZETIMIBE [Concomitant]
     Active Substance: EZETIMIBE
  7. AMLODIPINE [Concomitant]
     Active Substance: AMLODIPINE BESYLATE

REACTIONS (4)
  - Confusional state [Recovered/Resolved]
  - Pain [Recovered/Resolved]
  - Fatigue [Recovering/Resolving]
  - Drug interaction [Recovered/Resolved]
